FAERS Safety Report 7690216-3 (Version None)
Quarter: 2011Q3

REPORT INFORMATION
  Report Type: 
  Country: None (occurrence: None)
  Receive Date: 20110817
  Receipt Date: 20110817
  Transmission Date: 20111222
  Serious: Yes (Hospitalization)
  Sender: FDA-Public Use
  Company Number: None

PATIENT
  Sex: Female

DRUGS (1)
  1. CIMZIA [Suspect]
     Indication: CROHN'S DISEASE
     Dosage: 400MG Q2WKS SUB-Q
     Route: 058
     Dates: start: 20101001

REACTIONS (5)
  - VOMITING [None]
  - NAUSEA [None]
  - HAEMORRHAGE [None]
  - CROHN'S DISEASE [None]
  - MUSCLE SPASMS [None]
